FAERS Safety Report 11857637 (Version 1)
Quarter: 2015Q4

REPORT INFORMATION
  Report Type: Spontaneous
  Country: US (occurrence: None)
  Receive Date: 20151221
  Receipt Date: 20151221
  Transmission Date: 20160305
  Serious: No
  Sender: FDA-Public Use
  Company Number: None

PATIENT
  Age: 28 Year
  Sex: Female
  Weight: 86.18 kg

DRUGS (1)
  1. DEPO-PROVERA [Suspect]
     Active Substance: MEDROXYPROGESTERONE ACETATE
     Indication: CONTRACEPTION
     Route: 030
     Dates: start: 20150427, end: 20150727

REACTIONS (11)
  - Loss of libido [None]
  - Memory impairment [None]
  - Hypoaesthesia [None]
  - Cerebral disorder [None]
  - Mood swings [None]
  - Fatigue [None]
  - Screaming [None]
  - Abnormal behaviour [None]
  - Nervousness [None]
  - Increased appetite [None]
  - Bipolar disorder [None]

NARRATIVE: CASE EVENT DATE: 20150627
